FAERS Safety Report 5955827-1 (Version None)
Quarter: 2008Q4

REPORT INFORMATION
  Report Type: 
  Country: None (occurrence: None)
  Receive Date: 20081117
  Receipt Date: 20081105
  Transmission Date: 20090506
  Serious: Yes (Other)
  Sender: FDA-Public Use
  Company Number: US-PFIZER INC-2008094027

PATIENT

DRUGS (3)
  1. GEODON [Suspect]
  2. DRUG, UNSPECIFIED [Interacting]
  3. ALL OTHER THERAPEUTIC PRODUCTS [Concomitant]

REACTIONS (2)
  - DRUG INTERACTION [None]
  - MYOCLONUS [None]
